FAERS Safety Report 7517996-1 (Version None)
Quarter: 2011Q2

REPORT INFORMATION
  Report Type: 
  Country: None (occurrence: None)
  Receive Date: 20110531
  Receipt Date: 20110531
  Transmission Date: 20111010
  Serious: Yes (Life-Threatening, Hospitalization)
  Sender: FDA-Public Use
  Company Number: None

PATIENT
  Age: 24 Year
  Sex: Female
  Weight: 38.5557 kg

DRUGS (1)
  1. TUBERSOL [Suspect]
     Indication: TUBERCULOSIS
     Dosage: YEARLY INTRADERMAL TB SCREENING (5 UNITS) ANNUAL

REACTIONS (13)
  - FEELING COLD [None]
  - BRADYCARDIA [None]
  - HYPOPNOEA [None]
  - DIZZINESS [None]
  - GAIT DISTURBANCE [None]
  - LETHARGY [None]
  - CYANOSIS [None]
  - HYPOTENSION [None]
  - SYNCOPE [None]
  - HYPERHIDROSIS [None]
  - PALLOR [None]
  - PULSE ABNORMAL [None]
  - DEHYDRATION [None]
